FAERS Safety Report 8500655-6 (Version None)
Quarter: 2012Q3

REPORT INFORMATION
  Report Type: 
  Country: None (occurrence: None)
  Receive Date: 20120710
  Receipt Date: 20120706
  Transmission Date: 20120928
  Serious: Yes (Hospitalization)
  Sender: FDA-Public Use
  Company Number: US-GILEAD-2012-0056805

PATIENT
  Sex: Female

DRUGS (2)
  1. LETAIRIS [Suspect]
     Indication: PULMONARY HYPERTENSION
     Dosage: 10 MG, UNK
     Route: 048
     Dates: start: 20110817
  2. LETAIRIS [Suspect]
     Indication: HIV INFECTION

REACTIONS (3)
  - DIZZINESS [None]
  - VISUAL IMPAIRMENT [None]
  - HAEMORRHAGE [None]
